FAERS Safety Report 4364418-8 (Version None)
Quarter: 2004Q2

REPORT INFORMATION
  Report Type: 
  Country: None (occurrence: None)
  Receive Date: 20040525
  Receipt Date: 20040517
  Transmission Date: 20050107
  Serious: Yes (Other)
  Sender: FDA-Public Use
  Company Number: CA-ROCHE-367836

PATIENT
  Age: 83 Year
  Sex: Female

DRUGS (15)
  1. NAPROSYN [Suspect]
     Indication: DRUG USE FOR UNKNOWN INDICATION
     Route: 048
  2. ALTACE [Suspect]
     Indication: DRUG USE FOR UNKNOWN INDICATION
     Route: 048
  3. WARFARIN SODIUM [Suspect]
     Indication: DRUG USE FOR UNKNOWN INDICATION
     Dosage: DOSING AMOUNT: 2 DOSEFORM.
     Route: 048
  4. DOCUSATE SODIUM [Concomitant]
     Route: 048
  5. FERROUS GLUCONATE [Concomitant]
  6. GRAVOL TAB [Concomitant]
     Route: 042
  7. HALDOL [Concomitant]
     Route: 030
  8. LANSOPRAZOLE [Concomitant]
     Route: 048
  9. LIPITOR [Concomitant]
     Route: 048
  10. MONOCOR [Concomitant]
     Route: 048
  11. MORPHINE [Concomitant]
     Route: 030
  12. PREVACID [Concomitant]
     Route: 048
  13. PROPOFOL [Concomitant]
     Route: 042
  14. RAMIPRIL [Concomitant]
  15. TYLENOL [Concomitant]
     Route: 048

REACTIONS (3)
  - BLOOD CREATININE INCREASED [None]
  - BLOOD UREA INCREASED [None]
  - RENAL FAILURE ACUTE [None]
